FAERS Safety Report 4868528-8 (Version None)
Quarter: 2005Q4

REPORT INFORMATION
  Report Type: 
  Country: None (occurrence: None)
  Receive Date: 20051223
  Receipt Date: 20051215
  Transmission Date: 20060501
  Serious: Yes (Congenital Anomaly)
  Sender: FDA-Public Use
  Company Number: 2005169912

PATIENT
  Sex: 0

DRUGS (2)
  1. VIRACEPT [Suspect]
     Indication: HIV TEST POSITIVE
     Dosage: 2500 MG , ORAL
     Route: 048
     Dates: start: 20051018
  2. COMBIVIR [Suspect]
     Indication: HIV TEST POSITIVE
     Dosage: 2 DOSAGE FORM , ORAL
     Route: 048

REACTIONS (1)
  - NO ADVERSE DRUG EFFECT [None]
